FAERS Safety Report 5131621-9 (Version None)
Quarter: 2006Q4

REPORT INFORMATION
  Report Type: 
  Country: None (occurrence: None)
  Receive Date: 20061020
  Receipt Date: 20060926
  Transmission Date: 20070319
  Serious: Yes (Hospitalization)
  Sender: FDA-Public Use
  Company Number: US-BRISTOL-MYERS SQUIBB COMPANY-13522859

PATIENT
  Age: 52 Year
  Sex: Male

DRUGS (6)
  1. CETUXIMAB [Suspect]
     Indication: LUNG CANCER METASTATIC
     Route: 042
     Dates: start: 20060801, end: 20060919
  2. CARBOPLATIN [Suspect]
     Indication: LUNG CANCER METASTATIC
     Route: 042
     Dates: start: 20060801, end: 20060822
  3. TAXOTERE [Suspect]
     Indication: LUNG CANCER METASTATIC
     Route: 042
     Dates: start: 20060801, end: 20060822
  4. COUMADIN [Concomitant]
     Dates: start: 20060301
  5. LEVAQUIN [Concomitant]
     Dates: start: 20060911
  6. NORCO [Concomitant]
     Dates: start: 20060821

REACTIONS (2)
  - DEEP VEIN THROMBOSIS [None]
  - DYSPNOEA [None]
